FAERS Safety Report 15050327 (Version 2)
Quarter: 2024Q2

REPORT INFORMATION
  Report Type: Spontaneous
  Country: US (occurrence: US)
  Receive Date: 20180622
  Receipt Date: 20240618
  Transmission Date: 20240715
  Serious: Yes (Other)
  Sender: FDA-Public Use
  Company Number: US-009507513-1806USA006962

PATIENT
  Age: 81 Year
  Sex: Female

DRUGS (8)
  1. KEYTRUDA [Suspect]
     Active Substance: PEMBROLIZUMAB
     Indication: Lung adenocarcinoma
     Dosage: 200 MG, Q3W
     Route: 042
     Dates: start: 20180510
  2. KEYTRUDA [Suspect]
     Active Substance: PEMBROLIZUMAB
     Dosage: 400 MG EVERY 6 WEEKS, STRENGHT: 100 MG
     Route: 042
  3. CALCIUM [Concomitant]
     Active Substance: CALCIUM
  4. ASPIRIN [Concomitant]
     Active Substance: ASPIRIN
  5. IBUPROFEN [Concomitant]
     Active Substance: IBUPROFEN
  6. RISEDRONATE SODIUM [Concomitant]
     Active Substance: RISEDRONATE SODIUM
  7. LEVOTHYROXINE SODIUM [Concomitant]
     Active Substance: LEVOTHYROXINE SODIUM
  8. NIASPAN [Concomitant]
     Active Substance: NIACIN

REACTIONS (9)
  - Malignant neoplasm progression [Unknown]
  - Skin exfoliation [Not Recovered/Not Resolved]
  - Insomnia [Not Recovered/Not Resolved]
  - Urticaria [Not Recovered/Not Resolved]
  - Pruritus [Not Recovered/Not Resolved]
  - Diarrhoea [Unknown]
  - Pruritus [Unknown]
  - Product administration interrupted [Unknown]
  - Product use issue [Unknown]

NARRATIVE: CASE EVENT DATE: 20180101
